FAERS Safety Report 5501972-4 (Version None)
Quarter: 2007Q4

REPORT INFORMATION
  Report Type: 
  Country: None (occurrence: None)
  Receive Date: 20071030
  Receipt Date: 20071019
  Transmission Date: 20080405
  Serious: Yes (Death, Hospitalization)
  Sender: FDA-Public Use
  Company Number: PT-BAXTER-2007BH008463

PATIENT
  Age: 80 Year
  Sex: Female

DRUGS (6)
  1. EXTRANEAL [Suspect]
     Indication: PERITONEAL DIALYSIS
     Route: 033
  2. EXTRANEAL [Suspect]
     Route: 033
  3. PHYSIOSOL IN PLASTIC CONTAINER [Suspect]
     Indication: PERITONEAL DIALYSIS
     Route: 033
  4. PHYSIOSOL IN PLASTIC CONTAINER [Suspect]
     Route: 033
  5. PHYSIOSOL IN PLASTIC CONTAINER [Suspect]
     Route: 033
  6. NUTRINEAL [Suspect]
     Indication: PERITONEAL DIALYSIS
     Route: 033

REACTIONS (2)
  - DEMENTIA [None]
  - SEPTIC SHOCK [None]
